FAERS Safety Report 5983014-X (Version None)
Quarter: 2008Q4

REPORT INFORMATION
  Report Type: 
  Country: None (occurrence: None)
  Receive Date: 20081208
  Receipt Date: 20080303
  Transmission Date: 20090506
  Serious: No
  Sender: FDA-Public Use
  Company Number: US-AMGEN-KDL268075

PATIENT
  Sex: Female

DRUGS (1)
  1. ENBREL [Suspect]
     Indication: ANKYLOSING SPONDYLITIS
     Route: 058
     Dates: start: 20080215

REACTIONS (5)
  - ERYTHEMA [None]
  - FEELING HOT [None]
  - LIMB INJURY [None]
  - OEDEMA PERIPHERAL [None]
  - SWELLING FACE [None]
